FAERS Safety Report 4480891-9 (Version None)
Quarter: 2004Q4

REPORT INFORMATION
  Report Type: 
  Country: None (occurrence: None)
  Receive Date: 20041021
  Receipt Date: 20041014
  Transmission Date: 20050328
  Serious: Yes (Life-Threatening, Hospitalization)
  Sender: FDA-Public Use
  Company Number: 200413182JP

PATIENT
  Age: 24 Year
  Sex: Female

DRUGS (10)
  1. ARAVA [Suspect]
     Indication: RHEUMATOID ARTHRITIS
     Route: 048
     Dates: start: 20040409, end: 20040419
  2. MUCOSTA [Concomitant]
     Indication: GASTROINTESTINAL MUCOSAL DISORDER
     Route: 048
  3. MUCOSTA [Concomitant]
     Indication: PROPHYLAXIS
     Route: 048
  4. LOXONIN [Concomitant]
     Indication: PAIN
     Route: 048
  5. PREDONINE [Concomitant]
     Indication: ANTIINFLAMMATORY THERAPY
     Route: 048
  6. PREDONINE [Concomitant]
     Indication: PAIN
     Route: 048
  7. QUESTRAN [Concomitant]
     Indication: ADVERSE EVENT
     Route: 048
     Dates: start: 20040423, end: 20040503
  8. STRONG NEO-MINOPHAGEN C [Concomitant]
     Indication: ADVERSE EVENT
     Route: 051
     Dates: start: 20040429, end: 20040506
  9. FOY [Concomitant]
     Indication: ADVERSE EVENT
     Route: 051
     Dates: start: 20040429, end: 20040528
  10. SOLU-MEDROL [Concomitant]
     Indication: ADVERSE EVENT
     Route: 051
     Dates: start: 20040424

REACTIONS (11)
  - ALANINE AMINOTRANSFERASE INCREASED [None]
  - ASPARTATE AMINOTRANSFERASE INCREASED [None]
  - BLOOD ALKALINE PHOSPHATASE INCREASED [None]
  - BLOOD LACTATE DEHYDROGENASE INCREASED [None]
  - GAMMA-GLUTAMYLTRANSFERASE INCREASED [None]
  - HAEMOGLOBIN DECREASED [None]
  - HYPOAESTHESIA ORAL [None]
  - LIVER DISORDER [None]
  - PLATELET COUNT DECREASED [None]
  - RASH GENERALISED [None]
  - WHITE BLOOD CELL COUNT DECREASED [None]
